FAERS Safety Report 8740606 (Version 3)
Quarter: 2012Q4

REPORT INFORMATION
  Report Type: 
  Country: US (occurrence: US)
  Receive Date: 20120823
  Receipt Date: 20120920
  Transmission Date: 20130627
  Serious: No
  Sender: FDA-Public Use
  Company Number: US-PFIZER INC-2012204599

PATIENT
  Age: 48 Year
  Sex: Female
  Weight: 61.68 kg

DRUGS (22)
  1. LYRICA [Suspect]
     Dosage: 150 mg, 2x/day
     Route: 048
  2. NEURONTIN [Suspect]
     Indication: NEURALGIA
     Dosage: 300 mg, 2x/day
     Dates: start: 2011, end: 201208
  3. ZYPREXA [Suspect]
     Indication: EMOTIONAL DISORDER
     Dosage: UNK
  4. SEROQUEL [Suspect]
     Dosage: 600 mg, daily
     Route: 048
  5. ALBUTEROL [Concomitant]
     Dosage: UNK,
     Dates: start: 20040930
  6. NAMENDA [Concomitant]
     Dosage: UNK
     Route: 048
     Dates: start: 20091105
  7. ZOCOR [Concomitant]
     Dosage: 10 mg, at bedtime
     Route: 048
     Dates: start: 20120829
  8. NITROFURANTOIN [Concomitant]
     Dosage: 100 mg, nightly
     Route: 048
     Dates: start: 20110317
  9. IMITREX [Concomitant]
     Dosage: 100 mg, as needed, not more than 2/d
     Route: 048
     Dates: start: 20120112
  10. HYDROXYZINE HYDROCHLORIDE [Concomitant]
     Indication: DIZZINESS
     Dosage: 50 mg, tid as needed
     Route: 048
     Dates: start: 20120720
  11. DEPO-PROVERA [Concomitant]
     Dosage: 1 injection every 11-13 weeks
     Route: 030
     Dates: start: 2007
  12. FLEXERIL [Concomitant]
     Dosage: 10 mg, 3x/day
     Route: 048
  13. FISH OIL [Concomitant]
     Dosage: 1000 mg, 2x/day
     Route: 048
  14. CONCERTA [Concomitant]
     Dosage: 36 mg, 1x/day
     Route: 048
  15. EXELON [Concomitant]
     Dosage: 4.6 mg, 24 hour patch
     Route: 062
  16. CALCIUM WITH VITAMIN D [Concomitant]
     Dosage: UNK
     Route: 048
  17. ACIDOPHILUS [Concomitant]
     Dosage: daily
     Route: 046
  18. CRANBERRY [Concomitant]
     Dosage: 475 mg, 4x/day
     Route: 048
  19. MULTIVITAMIN [Concomitant]
     Dosage: daily
     Route: 048
  20. KLONOPIN [Concomitant]
     Dosage: 1 mg, 3x/day
     Route: 048
  21. COGENTIN [Concomitant]
     Dosage: 2 mg, daily
     Route: 048
  22. VOLTAREN [Concomitant]
     Dosage: 4 times daily, as needed
     Route: 062

REACTIONS (3)
  - Cystitis [Unknown]
  - Malaise [Unknown]
  - Drug ineffective [Unknown]
